FAERS Safety Report 10259871 (Version 2)
Quarter: 2014Q2

REPORT INFORMATION
  Report Type: Report from Study
  Country: GB (occurrence: GB)
  Receive Date: 20140625
  Receipt Date: 20140626
  Transmission Date: 20141212
  Serious: Yes (Other)
  Sender: FDA-Public Use
  Company Number: GB-GLAXOSMITHKLINE-B0992038A

PATIENT
  Age: 74 Year
  Sex: Female

DRUGS (2)
  1. FLUTICASONE FUROATE + VILANTEROL TRIFENATATE [Suspect]
     Indication: ASTHMA
     Route: 055
     Dates: start: 20140313
  2. CLOPIDOGREL [Concomitant]
     Indication: ISCHAEMIC STROKE
     Route: 048
     Dates: start: 20111230, end: 20140507

REACTIONS (2)
  - Ischaemic stroke [Recovering/Resolving]
  - Cerebrovascular accident [Recovering/Resolving]
